FAERS Safety Report 5312036-7 (Version None)
Quarter: 2007Q2

REPORT INFORMATION
  Report Type: 
  Country: None (occurrence: None)
  Receive Date: 20070430
  Receipt Date: 20060519
  Transmission Date: 20071010
  Serious: No
  Sender: FDA-Public Use
  Company Number: 2006UW09821

PATIENT
  Age: 31 Year
  Sex: Female
  Weight: 69.4 kg

DRUGS (5)
  1. NEXIUM [Suspect]
     Indication: GASTROOESOPHAGEAL REFLUX DISEASE
     Route: 048
  2. NEXIUM [Suspect]
     Indication: DYSPNOEA
     Route: 048
  3. NEXIUM [Suspect]
     Indication: CHEST DISCOMFORT
     Route: 048
  4. SYNTHROID [Concomitant]
  5. ZANTAC [Concomitant]

REACTIONS (2)
  - FEELING ABNORMAL [None]
  - HYPOAESTHESIA ORAL [None]
